FAERS Safety Report 14226471 (Version 2)
Quarter: 2017Q4

REPORT INFORMATION
  Report Type: Spontaneous
  Country: US (occurrence: US)
  Receive Date: 20171127
  Receipt Date: 20171128
  Transmission Date: 20180321
  Serious: Yes (Other)
  Sender: FDA-Public Use
  Company Number: US-PFIZER INC-2017503553

PATIENT
  Age: 76 Year
  Sex: Female
  Weight: 39 kg

DRUGS (2)
  1. IPRATROPIUM BROMIDE/ALBUTEROL SULFATE [Concomitant]
     Active Substance: ALBUTEROL SULFATE\IPRATROPIUM BROMIDE
     Indication: DYSPNOEA
     Dosage: 0.5 MG / 3 MG, 4 TIMES
  2. ATROPINE SULFATE/DIPHENOXYLATE HYDROCHLORIDE [Suspect]
     Active Substance: ATROPINE SULFATE\DIPHENOXYLATE HYDROCHLORIDE
     Indication: DIARRHOEA
     Dosage: 0.025 MG / 2.5 MG, 4X/DAY

REACTIONS (8)
  - Toothache [Unknown]
  - Malaise [Unknown]
  - Pain in extremity [Unknown]
  - Somnolence [Unknown]
  - Pulmonary pain [Unknown]
  - Cardiac flutter [Unknown]
  - Dyspnoea [Unknown]
  - Fatigue [Unknown]
